FAERS Safety Report 10530315 (Version 1)
Quarter: 2014Q4

REPORT INFORMATION
  Report Type: Spontaneous
  Country: NO (occurrence: None)
  Receive Date: 20141017
  Receipt Date: 20141017
  Transmission Date: 20150528
  Serious: Yes (Hospitalization)
  Sender: FDA-Public Use
  Company Number: NO-SEPTODONT-201402258

PATIENT
  Age: 41 Year
  Sex: Female

DRUGS (3)
  1. ARTACAINE HYDROCHLORIDE; EPINEPHRINE TARTRATE [Suspect]
     Active Substance: ARTICAINE HYDROCHLORIDE\EPINEPHRINE BITARTRATE
     Indication: LOCAL ANAESTHESIA
     Dosage: DF TOTAL PARENTERAL
     Route: 051
     Dates: start: 20140912
  2. LAVAXIN (LEVOTHYROXINE SODIUM) [Concomitant]
  3. (CETIRIZINE) [Concomitant]

REACTIONS (6)
  - Anxiety [None]
  - Dyspnoea [None]
  - Musculoskeletal stiffness [None]
  - Hypertrophy of tongue papillae [None]
  - Swollen tongue [None]
  - Hypersensitivity [None]

NARRATIVE: CASE EVENT DATE: 20140912
